FAERS Safety Report 20800982 (Version 1)
Quarter: 2022Q2

REPORT INFORMATION
  Report Type: Other
  Country: PH (occurrence: None)
  Receive Date: 20220509
  Receipt Date: 20220509
  Transmission Date: 20220721
  Serious: Yes (Other)
  Sender: FDA-Public Use
  Company Number: PH-ROCHE-3087071

PATIENT
  Age: 77 Year
  Sex: Female

DRUGS (2)
  1. GAZYVA [Suspect]
     Active Substance: OBINUTUZUMAB
     Indication: Chronic lymphocytic leukaemia
     Dosage: 1ST CYCLE 1000MG FOR 15 DAYS AND CYCLE 2 ONWARDS 1000MG EVERY 3 WEEKS ;ONGOING: NO
     Route: 042
  2. RITUXIMAB [Concomitant]
     Active Substance: RITUXIMAB
     Indication: Product used for unknown indication
     Dosage: NOT PROVIDED ;ONGOING: YES
     Route: 041

REACTIONS (4)
  - Hypersensitivity [Unknown]
  - Swelling [Unknown]
  - Pulmonary oedema [Unknown]
  - Fluid retention [Unknown]
